FAERS Safety Report 17676465 (Version 1)
Quarter: 2020Q2

REPORT INFORMATION
  Report Type: Spontaneous
  Country: US (occurrence: US)
  Receive Date: 20200416
  Receipt Date: 20200416
  Transmission Date: 20200714
  Serious: Yes (Hospitalization)
  Sender: FDA-Public Use
  Company Number: US-009507513-2004USA002666

PATIENT
  Sex: Female
  Weight: 45 kg

DRUGS (7)
  1. SINEMET CR [Suspect]
     Active Substance: CARBIDOPA\LEVODOPA
     Indication: PARKINSON^S DISEASE
     Dosage: UNK
     Route: 065
  2. RYTARY [Suspect]
     Active Substance: CARBIDOPA\LEVODOPA
     Dosage: 23.75/ 95 MG 2 CAPSULES 4 TIMES A DAY
     Route: 048
     Dates: start: 2017
  3. XANAX [Concomitant]
     Active Substance: ALPRAZOLAM
     Indication: ANXIETY
     Dosage: UNK
  4. INSULIN [Concomitant]
     Active Substance: INSULIN NOS
     Indication: TYPE 1 DIABETES MELLITUS
     Dosage: UNK
     Route: 065
  5. RYTARY [Suspect]
     Active Substance: CARBIDOPA\LEVODOPA
     Dosage: 23.75/ 95 MG,1 CAPSULE, 4 /DAYUNK
     Route: 048
     Dates: start: 201709
  6. RYTARY [Suspect]
     Active Substance: CARBIDOPA\LEVODOPA
     Indication: PARKINSON^S DISEASE
     Dosage: 48.75 MG/ 195 MG,UNK
     Route: 048
     Dates: start: 2017
  7. XANAX [Concomitant]
     Active Substance: ALPRAZOLAM
     Indication: DEMENTIA
     Dosage: UNK
     Route: 065

REACTIONS (9)
  - Therapeutic product effect incomplete [Unknown]
  - Agitation [Unknown]
  - Cerebrovascular accident [Recovering/Resolving]
  - Drug ineffective [Unknown]
  - Blood glucose decreased [Unknown]
  - Aggression [Recovering/Resolving]
  - Urinary tract infection [Unknown]
  - Hypersomnia [Unknown]
  - Restlessness [Unknown]

NARRATIVE: CASE EVENT DATE: 2017
